FAERS Safety Report 7971423-9 (Version None)
Quarter: 2011Q4

REPORT INFORMATION
  Report Type: 
  Country: None (occurrence: None)
  Receive Date: 20111209
  Receipt Date: 20111209
  Transmission Date: 20120403
  Serious: Yes (Hospitalization)
  Sender: FDA-Public Use
  Company Number: None

PATIENT
  Sex: Female
  Weight: 57.5 kg

DRUGS (11)
  1. PREDNISONE TAB [Suspect]
     Dosage: 1520 MG
  2. ONDANSETRON [Concomitant]
  3. ACETAMINOPHEN [Concomitant]
  4. ZANTAC [Concomitant]
  5. VINCRISTINE SULFATE [Suspect]
     Dosage: 8 MG
  6. BACTRIM [Concomitant]
  7. METHOTREXATE [Suspect]
     Dosage: 15 MG
  8. ONCASPAR [Suspect]
     Dosage: 15925 IU
  9. DOXORUBICIN HCL [Suspect]
     Dosage: 96 MG
  10. CYTARABINE [Suspect]
     Dosage: 70 MG
  11. FLUCONAZOLE [Concomitant]

REACTIONS (2)
  - HEPATOMEGALY [None]
  - HEPATIC STEATOSIS [None]
